FAERS Safety Report 5599698-4 (Version None)
Quarter: 2008Q1

REPORT INFORMATION
  Report Type: 
  Country: None (occurrence: None)
  Receive Date: 20080123
  Receipt Date: 20080114
  Transmission Date: 20080703
  Serious: Yes (Other)
  Sender: FDA-Public Use
  Company Number: US-BRISTOL-MYERS SQUIBB COMPANY-14039994

PATIENT
  Sex: Female

DRUGS (2)
  1. IXEMPRA [Suspect]
  2. WARFARIN SODIUM [Suspect]

REACTIONS (3)
  - DEEP VEIN THROMBOSIS [None]
  - DRUG INTERACTION [None]
  - INTERNATIONAL NORMALISED RATIO ABNORMAL [None]
